FAERS Safety Report 4581153-1 (Version None)
Quarter: 2005Q1

REPORT INFORMATION
  Report Type: 
  Country: None (occurrence: None)
  Receive Date: 20050214
  Receipt Date: 20040817
  Transmission Date: 20050727
  Serious: No
  Sender: FDA-Public Use
  Company Number: US-GLAXOSMITHKLINE-A0522451A

PATIENT
  Age: 43 Year
  Sex: Female
  Weight: 65.9 kg

DRUGS (2)
  1. LAMICTAL [Suspect]
     Indication: BIPOLAR DISORDER
     Dosage: 100MG PER DAY
     Route: 048
     Dates: start: 20031101, end: 20040809
  2. NO CONCURRENT MEDICATION [Concomitant]

REACTIONS (3)
  - PARAESTHESIA [None]
  - RASH [None]
  - TONGUE COATED [None]
